FAERS Safety Report 20867579 (Version 1)
Quarter: 2022Q2

REPORT INFORMATION
  Report Type: Spontaneous
  Country: BR (occurrence: BR)
  Receive Date: 20220524
  Receipt Date: 20220524
  Transmission Date: 20220721
  Serious: Yes (Other)
  Sender: FDA-Public Use
  Company Number: BR-BAYER-2022A073781

PATIENT
  Age: 28 Year
  Sex: Female

DRUGS (1)
  1. YASMIN [Suspect]
     Active Substance: DROSPIRENONE\ETHINYL ESTRADIOL
     Indication: Oral contraception
     Dosage: 1 DF, QD
     Route: 048
     Dates: end: 2020

REACTIONS (3)
  - Breast tenderness [Recovering/Resolving]
  - Dizziness [Recovering/Resolving]
  - Breast pain [Recovering/Resolving]
